FAERS Safety Report 20825838 (Version 3)
Quarter: 2023Q2

REPORT INFORMATION
  Report Type: Spontaneous
  Country: GB (occurrence: GB)
  Receive Date: 20220513
  Receipt Date: 20230620
  Transmission Date: 20230722
  Serious: Yes (Other)
  Sender: FDA-Public Use
  Company Number: None

PATIENT
  Age: 50 Year
  Sex: Male
  Weight: 67.2 kg

DRUGS (10)
  1. KEPPRA [Suspect]
     Active Substance: LEVETIRACETAM
     Indication: Epilepsy
     Dosage: 500 MILLIGRAM, NOCTE
     Route: 048
     Dates: start: 20111102
  2. KEPPRA [Suspect]
     Active Substance: LEVETIRACETAM
     Dosage: 250 MILLIGRAM, MANE
     Route: 048
     Dates: start: 20111102
  3. KEPPRA [Suspect]
     Active Substance: LEVETIRACETAM
     Dosage: 750 MILLIGRAM, HS (250 MG IN THE MORNING AND 500 MG AT NIGHT)
     Route: 048
     Dates: start: 20111102
  4. AMISULPRIDE [Suspect]
     Active Substance: AMISULPRIDE
     Indication: Product used for unknown indication
     Dosage: 200 MILLIGRAM, BID
     Route: 048
     Dates: start: 20090617
  5. CLOZARIL [Suspect]
     Active Substance: CLOZAPINE
     Indication: Product used for unknown indication
     Dosage: 350 MILLIGRAM, NOCTE (NIGHT)
     Route: 048
     Dates: start: 20090706
  6. CLOZARIL [Suspect]
     Active Substance: CLOZAPINE
     Dosage: 200 MILLIGRAM, MANE (MORNING)
     Route: 048
     Dates: start: 20090706
  7. CLOZARIL [Suspect]
     Active Substance: CLOZAPINE
     Dosage: 550 MILLIGRAM, HS (200 MG IN THE MORNING AND 350 MG AT NIGHT)
     Route: 048
     Dates: start: 20090706
  8. SCOPOLAMINE HYDROBROMIDE [Suspect]
     Active Substance: SCOPOLAMINE HYDROBROMIDE
     Indication: Product used for unknown indication
     Dosage: 300 UG, BID
     Route: 048
     Dates: start: 20090617
  9. PROCYCLIDINE [Suspect]
     Active Substance: PROCYCLIDINE
     Indication: Product used for unknown indication
     Dosage: 5 MG, (IN THE MORNING)
     Route: 048
     Dates: start: 20090617
  10. VALPROATE SODIUM [Suspect]
     Active Substance: VALPROATE SODIUM
     Indication: Product used for unknown indication
     Dosage: 1200 MG, BID
     Route: 048
     Dates: start: 20090617

REACTIONS (2)
  - Thrombocytopenia [Not Recovered/Not Resolved]
  - Product use issue [Unknown]

NARRATIVE: CASE EVENT DATE: 20110101
